FAERS Safety Report 25990356 (Version 1)
Quarter: 2025Q4

REPORT INFORMATION
  Report Type: Spontaneous
  Country: US (occurrence: US)
  Receive Date: 20251103
  Receipt Date: 20251103
  Transmission Date: 20260117
  Serious: Yes (Other)
  Sender: MERCK SHARP & DOHME LLC
  Company Number: US-009507513-2343574

PATIENT
  Age: 76 Year

DRUGS (1)
  1. KEYTRUDA [Suspect]
     Active Substance: PEMBROLIZUMAB
     Indication: Non-Hodgkin^s lymphoma
     Route: 050
     Dates: start: 202503

REACTIONS (2)
  - Malignant neoplasm progression [Unknown]
  - Leukaemia [Unknown]

NARRATIVE: CASE EVENT DATE: 20250501
